FAERS Safety Report 17517535 (Version 1)
Quarter: 2020Q1

REPORT INFORMATION
  Report Type: Spontaneous
  Country: US (occurrence: US)
  Receive Date: 20200309
  Receipt Date: 20200309
  Transmission Date: 20200409
  Serious: Yes (Life-Threatening, Hospitalization, Disabling)
  Sender: FDA-Public Use
  Company Number: None

PATIENT
  Age: 72 Year
  Sex: Male
  Weight: 120 kg

DRUGS (1)
  1. COSENTYX [Suspect]
     Active Substance: SECUKINUMAB
     Indication: PSORIATIC ARTHROPATHY
     Dosage: ?          OTHER FREQUENCY:EVERY 30 DAYS;?
     Route: 058

REACTIONS (6)
  - Post procedural complication [None]
  - Intestinal perforation [None]
  - Renal failure [None]
  - Diverticulitis [None]
  - Gastrointestinal disorder [None]
  - Infection [None]

NARRATIVE: CASE EVENT DATE: 20200220
